FAERS Safety Report 17295910 (Version 1)
Quarter: 2020Q1

REPORT INFORMATION
  Report Type: Spontaneous
  Country: FR (occurrence: FR)
  Receive Date: 20200121
  Receipt Date: 20200121
  Transmission Date: 20200409
  Serious: Yes (Other)
  Sender: FDA-Public Use
  Company Number: FR-MYLANLABS-2020M1004888

PATIENT
  Age: 68 Year
  Sex: Female
  Weight: 56 kg

DRUGS (2)
  1. LETROZOLE. [Suspect]
     Active Substance: LETROZOLE
     Indication: BREAST CANCER RECURRENT
     Dosage: 1 DOSAGE FORM, QD
     Route: 048
     Dates: start: 20190528, end: 20190819
  2. KISQALI [Suspect]
     Active Substance: RIBOCICLIB
     Indication: BREAST CANCER RECURRENT
     Dosage: 400 MILLIGRAM, CYCLE
     Route: 048
     Dates: start: 20190724, end: 20190814

REACTIONS (1)
  - Dermatitis bullous [Recovering/Resolving]

NARRATIVE: CASE EVENT DATE: 20190806
